FAERS Safety Report 16993602 (Version 1)
Quarter: 2019Q4

REPORT INFORMATION
  Report Type: Spontaneous
  Country: US (occurrence: US)
  Receive Date: 20190923
  Receipt Date: 20190923
  Transmission Date: 20200122
  Serious: Yes (Life-Threatening)
  Sender: FDA-Public Use
  Company Number: None

PATIENT
  Age: 71 Year
  Sex: Male

DRUGS (2)
  1. LISINOPRIL. [Suspect]
     Active Substance: LISINOPRIL
     Indication: SCAN WITH CONTRAST
     Route: 048
     Dates: start: 20190403, end: 20190420
  2. IOHEXOL [Suspect]
     Active Substance: IOHEXOL
     Indication: HYPERTENSION
     Route: 048
     Dates: start: 20190820, end: 20190820

REACTIONS (7)
  - Swollen tongue [None]
  - Flushing [None]
  - Pruritus [None]
  - Dyspnoea [None]
  - Urticaria [None]
  - Swelling [None]
  - Feeling hot [None]
